FAERS Safety Report 7110677-8 (Version None)
Quarter: 2010Q4

REPORT INFORMATION
  Report Type: 
  Country: None (occurrence: None)
  Receive Date: 20101118
  Receipt Date: 20101110
  Transmission Date: 20110411
  Serious: Yes (Hospitalization)
  Sender: FDA-Public Use
  Company Number: A0798484A

PATIENT
  Age: 57 Year
  Sex: Male
  Weight: 104.5 kg

DRUGS (6)
  1. AVANDIA [Suspect]
     Indication: DIABETES MELLITUS
     Dosage: 8MG PER DAY
     Route: 048
     Dates: start: 20030101
  2. VYTORIN [Concomitant]
  3. INSULIN [Concomitant]
  4. MICARDIS [Concomitant]
  5. CIALIS [Concomitant]
  6. AMLODIPINE [Concomitant]

REACTIONS (6)
  - ASTHENIA [None]
  - CORONARY ARTERIAL STENT INSERTION [None]
  - DYSPNOEA [None]
  - MYOCARDIAL INFARCTION [None]
  - OEDEMA PERIPHERAL [None]
  - PAIN IN EXTREMITY [None]
